FAERS Safety Report 18111924 (Version 2)
Quarter: 2020Q3

REPORT INFORMATION
  Report Type: Other
  Country: FR (occurrence: FR)
  Receive Date: 20200805
  Receipt Date: 20200814
  Transmission Date: 20201103
  Serious: Yes (Other)
  Sender: FDA-Public Use
  Company Number: FR-ROCHE-2653652

PATIENT

DRUGS (8)
  1. DOXORUBICIN [Suspect]
     Active Substance: DOXORUBICIN
     Indication: DIFFUSE LARGE B-CELL LYMPHOMA
     Dosage: D1
     Route: 065
  2. VALACYCLOVIR [Concomitant]
     Active Substance: VALACYCLOVIR HYDROCHLORIDE
  3. TAZEMETOSTAT [Suspect]
     Active Substance: TAZEMETOSTAT
     Indication: DIFFUSE LARGE B-CELL LYMPHOMA
     Dosage: ON DAY 2 OF R?CHOP CYCLE 1
     Route: 065
  4. VINCRISTINE [Suspect]
     Active Substance: VINCRISTINE
     Indication: DIFFUSE LARGE B-CELL LYMPHOMA
     Dosage: D1
     Route: 065
  5. COTRIMOXAZOLE [Concomitant]
     Active Substance: SULFAMETHOXAZOLE\TRIMETHOPRIM
  6. RITUXIMAB. [Suspect]
     Active Substance: RITUXIMAB
     Indication: DIFFUSE LARGE B-CELL LYMPHOMA
     Dosage: D1
     Route: 042
  7. PREDNISOLONE. [Suspect]
     Active Substance: PREDNISOLONE
     Indication: DIFFUSE LARGE B-CELL LYMPHOMA
     Dosage: D1?5
     Route: 048
  8. CYCLOPHOSPHAMIDE. [Suspect]
     Active Substance: CYCLOPHOSPHAMIDE
     Indication: DIFFUSE LARGE B-CELL LYMPHOMA
     Dosage: D1
     Route: 065

REACTIONS (14)
  - Infection [Unknown]
  - Asthenia [Unknown]
  - Vomiting [Unknown]
  - Febrile neutropenia [Unknown]
  - Nausea [Unknown]
  - Hypokalaemia [Unknown]
  - Cholestasis [Unknown]
  - Pyelonephritis acute [Unknown]
  - Neutropenia [Unknown]
  - Anaemia [Unknown]
  - Staphylococcal bacteraemia [Unknown]
  - Constipation [Unknown]
  - Leukopenia [Unknown]
  - Thrombocytopenia [Unknown]
